FAERS Safety Report 19489956 (Version 2)
Quarter: 2021Q3

REPORT INFORMATION
  Report Type: Spontaneous
  Country: US (occurrence: US)
  Receive Date: 20210704
  Receipt Date: 20210811
  Transmission Date: 20211014
  Serious: No
  Sender: FDA-Public Use
  Company Number: US-JNJFOC-20210701805

PATIENT
  Age: 30 Year
  Sex: Male
  Weight: 118.04 kg

DRUGS (1)
  1. TREMFYA [Suspect]
     Active Substance: GUSELKUMAB
     Indication: PSORIASIS
     Dosage: TREMFYA 100 MG/ML ONE PRESS AUTOINJECTOR
     Route: 065
     Dates: start: 201812

REACTIONS (5)
  - Wrong technique in product usage process [Unknown]
  - Therapy interrupted [Unknown]
  - Drug delivery system malfunction [Unknown]
  - Product dose omission issue [Unknown]
  - Accidental exposure to product [Unknown]

NARRATIVE: CASE EVENT DATE: 202003
